FAERS Safety Report 14895731 (Version 1)
Quarter: 2018Q2

REPORT INFORMATION
  Report Type: Spontaneous
  Country: US (occurrence: US)
  Receive Date: 20180515
  Receipt Date: 20180515
  Transmission Date: 20180711
  Serious: No
  Sender: FDA-Public Use
  Company Number: US-BAYER-2018-086984

PATIENT
  Age: 7 Year
  Sex: Male

DRUGS (1)
  1. CLARITIN [Suspect]
     Active Substance: LORATADINE
     Indication: SEASONAL ALLERGY
     Dosage: 4 TEASPOONS
     Route: 048
     Dates: start: 2018

REACTIONS (1)
  - Wrong dose [Recovered/Resolved]

NARRATIVE: CASE EVENT DATE: 20180506
